FAERS Safety Report 5822724-1 (Version None)
Quarter: 2008Q3

REPORT INFORMATION
  Report Type: 
  Country: None (occurrence: None)
  Receive Date: 20080725
  Receipt Date: 20071031
  Transmission Date: 20090109
  Serious: No
  Sender: FDA-Public Use
  Company Number: US-AMGEN-KDL250810

PATIENT
  Sex: Male
  Weight: 99.9 kg

DRUGS (7)
  1. PROCRIT [Suspect]
     Indication: RENAL FAILURE CHRONIC
     Dates: start: 20070401
  2. INSULIN [Concomitant]
  3. ZYRTEC [Concomitant]
  4. HYDROCHLOROTHIAZIDE [Concomitant]
  5. TOPRAL [Concomitant]
  6. VASOTEC [Concomitant]
  7. VITAMIN TAB [Concomitant]

REACTIONS (1)
  - HAEMOGLOBIN DECREASED [None]
